FAERS Safety Report 4482259-8 (Version None)
Quarter: 2004Q4

REPORT INFORMATION
  Report Type: 
  Country: None (occurrence: None)
  Receive Date: 20041022
  Receipt Date: 20041014
  Transmission Date: 20050328
  Serious: Yes (Hospitalization)
  Sender: FDA-Public Use
  Company Number: 200417896US

PATIENT
  Sex: Male

DRUGS (8)
  1. LOVENOX [Suspect]
     Indication: DEEP VEIN THROMBOSIS
     Route: 058
     Dates: start: 20041001, end: 20041006
  2. COUMADIN [Concomitant]
     Dosage: DOSE: UNK
  3. TEQUIN [Concomitant]
     Dosage: DOSE: UNK
  4. CLINDAMYCIN HCL [Concomitant]
     Indication: CELLULITIS
     Dosage: DOSE: UNK
  5. INSULIN [Concomitant]
     Dosage: DOSE: UNK
  6. ACIPHEX [Concomitant]
     Dosage: DOSE: UNK
  7. ALBUTEROL [Concomitant]
     Dosage: DOSE: UNK
  8. ATROVENT [Concomitant]
     Dosage: DOSE: UNK

REACTIONS (12)
  - ACTIVATED PARTIAL THROMBOPLASTIN TIME PROLONGED [None]
  - CHRONIC OBSTRUCTIVE AIRWAYS DISEASE EXACERBATED [None]
  - CONFUSIONAL STATE [None]
  - HAEMATOCRIT DECREASED [None]
  - HAEMOGLOBIN DECREASED [None]
  - HYPERNATRAEMIA [None]
  - HYPOTENSION [None]
  - INTERNATIONAL NORMALISED RATIO DECREASED [None]
  - MUSCLE HAEMORRHAGE [None]
  - PLATELET COUNT INCREASED [None]
  - PNEUMONIA [None]
  - RESPIRATORY FAILURE [None]
